FAERS Safety Report 12795798 (Version 1)
Quarter: 2016Q3

REPORT INFORMATION
  Report Type: Spontaneous
  Country: CZ (occurrence: CZ)
  Receive Date: 20160929
  Receipt Date: 20160929
  Transmission Date: 20161109
  Serious: Yes (Other)
  Sender: FDA-Public Use
  Company Number: CZ-MYLANLABS-2016M1041378

PATIENT

DRUGS (1)
  1. METHOTREXATE. [Suspect]
     Active Substance: METHOTREXATE
     Indication: COLITIS ULCERATIVE
     Dosage: 5MG
     Route: 048

REACTIONS (3)
  - Swelling face [Recovered/Resolved]
  - Rash [Recovered/Resolved]
  - Circulatory collapse [Recovered/Resolved]
